FAERS Safety Report 25397368 (Version 1)
Quarter: 2025Q2

REPORT INFORMATION
  Report Type: Spontaneous
  Country: JP (occurrence: JP)
  Receive Date: 20250604
  Receipt Date: 20250604
  Transmission Date: 20250717
  Serious: Yes (Hospitalization, Other)
  Sender: SANDOZ
  Company Number: JP-002147023-NVSJ2025JP005825

PATIENT
  Age: 68 Year
  Sex: Male

DRUGS (1)
  1. ZOLEDRONIC ACID [Suspect]
     Active Substance: ZOLEDRONIC ACID
     Indication: Metastases to bone
     Route: 065
     Dates: start: 2013

REACTIONS (6)
  - Exposed bone in jaw [Recovering/Resolving]
  - Pathological fracture [Recovering/Resolving]
  - Mouth swelling [Recovering/Resolving]
  - Dental fistula [Recovering/Resolving]
  - Cellulitis [Recovering/Resolving]
  - Osteonecrosis of jaw [Recovering/Resolving]
